FAERS Safety Report 22276476 (Version 1)
Quarter: 2023Q2

REPORT INFORMATION
  Report Type: Spontaneous
  Country: ID (occurrence: ID)
  Receive Date: 20230503
  Receipt Date: 20230503
  Transmission Date: 20230721
  Serious: Yes (Other)
  Sender: FDA-Public Use
  Company Number: None

PATIENT
  Age: 49 Year
  Sex: Male

DRUGS (4)
  1. CAPECITABINE [Suspect]
     Active Substance: CAPECITABINE
     Indication: Metastases to liver
     Dosage: XELOX REGIMEN, 3 TIMES A WEEK?FOR 8 CYCLES
  2. CAPECITABINE [Suspect]
     Active Substance: CAPECITABINE
     Indication: Adenocarcinoma of colon
     Dosage: XELOX REGIMEN, 3 TIMES A WEEK?FOR 8 CYCLES
  3. OXALIPLATIN [Suspect]
     Active Substance: OXALIPLATIN
     Indication: Metastases to liver
     Dosage: XELOX REGIMEN, 3 TIMES A WEEK?FOR 8 CYCLES
  4. OXALIPLATIN [Suspect]
     Active Substance: OXALIPLATIN
     Indication: Adenocarcinoma of colon
     Dosage: XELOX REGIMEN, 3 TIMES A WEEK?FOR 8 CYCLES

REACTIONS (2)
  - Uraemic encephalopathy [Unknown]
  - Acute kidney injury [Recovered/Resolved]
